FAERS Safety Report 4832693-9 (Version None)
Quarter: 2005Q4

REPORT INFORMATION
  Report Type: 
  Country: None (occurrence: None)
  Receive Date: 20051121
  Receipt Date: 20051115
  Transmission Date: 20060501
  Serious: Yes (Life-Threatening)
  Sender: FDA-Public Use
  Company Number: PHHO2005JP18037

PATIENT
  Age: 67 Year
  Sex: Male
  Weight: 56 kg

DRUGS (12)
  1. LOCHOL [Concomitant]
  2. SLOW-K [Concomitant]
  3. NORMONAL [Concomitant]
  4. NORVASC [Concomitant]
  5. ASPIRIN [Concomitant]
  6. TAKEPRON [Concomitant]
  7. ZANTAC [Concomitant]
  8. GRIMAC [Concomitant]
  9. AMLODIPINE BESYLATE [Concomitant]
  10. GLIMICRON [Concomitant]
  11. DIOVAN [Suspect]
     Indication: HYPERTENSION
     Dosage: 40 MG, QD
     Route: 048
     Dates: start: 20021125, end: 20040105
  12. DIOVAN [Suspect]
     Dosage: 80 MG, QD
     Route: 048
     Dates: start: 20040106

REACTIONS (2)
  - PROSTATE CANCER [None]
  - PROSTATIC OPERATION [None]
